FAERS Safety Report 8356848-4 (Version None)
Quarter: 2012Q2

REPORT INFORMATION
  Report Type: 
  Country: None (occurrence: None)
  Receive Date: 20120510
  Receipt Date: 20120504
  Transmission Date: 20120825
  Serious: Yes (Death)
  Sender: FDA-Public Use
  Company Number: 2012SP024061

PATIENT
  Age: 59 Year
  Sex: Male

DRUGS (2)
  1. VICTRELIS [Suspect]
     Indication: HEPATITIS C
     Dates: start: 20120326
  2. KEPPRA [Concomitant]

REACTIONS (1)
  - RESPIRATORY ARREST [None]
